FAERS Safety Report 6866525-4 (Version None)
Quarter: 2010Q2

REPORT INFORMATION
  Report Type: 
  Country: None (occurrence: None)
  Receive Date: 20100601
  Receipt Date: 20090529
  Transmission Date: 20101027
  Serious: Yes (Other)
  Sender: FDA-Public Use
  Company Number: WAES 0905USA04166

PATIENT
  Age: 60 Year
  Sex: Female

DRUGS (1)
  1. FOSAMAX PLUS D [Suspect]
     Indication: OSTEOPOROSIS
     Dosage: 70 MG/2800 IU/WKY/PO
     Route: 048
     Dates: start: 20060414, end: 20080513

REACTIONS (13)
  - ADVERSE EVENT [None]
  - BLOOD CHOLESTEROL INCREASED [None]
  - DENTAL CARIES [None]
  - EDENTULOUS [None]
  - GINGIVITIS [None]
  - IMPAIRED HEALING [None]
  - INGUINAL HERNIA, OBSTRUCTIVE [None]
  - INTERVERTEBRAL DISC DISORDER [None]
  - JAW DISORDER [None]
  - LOW TURNOVER OSTEOPATHY [None]
  - OSTEONECROSIS [None]
  - SPINAL DISORDER [None]
  - SPONDYLOLYSIS [None]
